FAERS Safety Report 7683573 (Version 6)
Quarter: 2013Q2

REPORT INFORMATION
  Report Type: Report from Study
  Country: CA (occurrence: CA)
  Receive Date: 20101125
  Receipt Date: 20130604
  Transmission Date: 20140414
  Serious: Yes (Life-Threatening, Hospitalization, Other)
  Sender: FDA-Public Use
  Company Number: PHHY2010CA76440

PATIENT
  Age: 77 Year
  Sex: Female

DRUGS (8)
  1. ACLASTA [Suspect]
     Indication: OSTEOPOROSIS
     Dosage: 5 MG ONCE YEARLY
     Route: 042
     Dates: start: 20100113
  2. ACLASTA [Suspect]
     Dosage: 5 MG ONCE YEARLY
     Route: 042
     Dates: start: 20110613
  3. ACLASTA [Suspect]
     Dosage: 5 MG ONCE YEARLY
     Route: 042
     Dates: start: 20120612
  4. LYRICA [Concomitant]
     Dosage: 50 MG, BID
  5. TIAZAC [Concomitant]
     Dosage: UNK
  6. FLEXERIL [Concomitant]
     Dosage: UNK
  7. OXYCODONE [Concomitant]
     Dosage: UNK
  8. PANTOLOC ^BYK GULDEN^ [Concomitant]
     Dosage: 40 MG, QID

REACTIONS (4)
  - Lymphoma [Recovering/Resolving]
  - Breast cancer [Unknown]
  - Gastrooesophageal reflux disease [Unknown]
  - Thrombophlebitis [Recovered/Resolved]
